FAERS Safety Report 9993557 (Version 2)
Quarter: 2014Q1

REPORT INFORMATION
  Report Type: Report from Study
  Country: US (occurrence: US)
  Receive Date: 20140310
  Receipt Date: 20140324
  Transmission Date: 20141002
  Serious: Yes (Hospitalization, Other)
  Sender: FDA-Public Use
  Company Number: US-ABBVIE-14P-163-1209019-00

PATIENT
  Age: 59 Year
  Sex: Female

DRUGS (11)
  1. HUMIRA [Suspect]
     Indication: RHEUMATOID ARTHRITIS
     Dates: start: 2009, end: 201402
  2. METHOTREXATE [Concomitant]
     Indication: PRODUCT USED FOR UNKNOWN INDICATION
  3. ASPIRIN [Concomitant]
     Indication: PRODUCT USED FOR UNKNOWN INDICATION
  4. ATENOLOL [Concomitant]
     Indication: HYPERTENSION
  5. ATENOLOL [Concomitant]
     Indication: CHEST PAIN
  6. FOLIC ACID [Concomitant]
     Indication: PRODUCT USED FOR UNKNOWN INDICATION
  7. LISINIOPRIL-HCTZ [Concomitant]
     Indication: HYPERTENSION
     Dosage: 20-12.5MG DAILY
  8. VIT D3 [Concomitant]
     Indication: PRODUCT USED FOR UNKNOWN INDICATION
  9. VIT C [Concomitant]
     Indication: PRODUCT USED FOR UNKNOWN INDICATION
  10. XANAX [Concomitant]
     Indication: ANXIETY
  11. CYMBALTA [Concomitant]
     Indication: PAIN

REACTIONS (22)
  - Heart valve stenosis [Unknown]
  - Neck surgery [Recovered/Resolved]
  - Chest pain [Recovered/Resolved]
  - Chest pain [Recovered/Resolved]
  - Chest pain [Recovering/Resolving]
  - Bone cancer [Not Recovered/Not Resolved]
  - Gastroenteritis [Recovering/Resolving]
  - Monoclonal gammopathy [Not Recovered/Not Resolved]
  - Pain in jaw [Recovered/Resolved]
  - Pain [Not Recovered/Not Resolved]
  - Fibromyalgia [Not Recovered/Not Resolved]
  - Depression [Not Recovered/Not Resolved]
  - Protein total [Unknown]
  - Confusional state [Unknown]
  - Blood potassium decreased [Unknown]
  - Hypocalcaemia [Unknown]
  - Leukocytosis [Unknown]
  - Hepatic lesion [Not Recovered/Not Resolved]
  - Haemangioma of liver [Not Recovered/Not Resolved]
  - Arteriosclerosis coronary artery [Not Recovered/Not Resolved]
  - Cardiac disorder [Unknown]
  - Joint swelling [Unknown]
